FAERS Safety Report 4476190-1 (Version None)
Quarter: 2004Q3

REPORT INFORMATION
  Report Type: 
  Country: None (occurrence: None)
  Receive Date: 20040923
  Receipt Date: 20040728
  Transmission Date: 20050211
  Serious: No
  Sender: FDA-Public Use
  Company Number: USA040774009

PATIENT
  Age: 68 Year
  Sex: Female

DRUGS (13)
  1. FORTEO [Suspect]
     Indication: OSTEOPOROSIS
     Dates: start: 20040727
  2. ACIPHEX [Concomitant]
  3. NIFEREX (POLYSACCHARIDE-IRON COMPLEX) [Concomitant]
  4. HUMIRA [Concomitant]
  5. NORVASC [Concomitant]
  6. KLOR-CON [Concomitant]
  7. SKELAXIN [Concomitant]
  8. EFFEXOR [Concomitant]
  9. SPIRONOLACTONE W/ HYDROCHLOROTHIAZIDE [Concomitant]
  10. CALTRATE (CALCIUM CARBONATE) [Concomitant]
  11. METHOTREXATE [Concomitant]
  12. ULTRACEF (CEFADROXIL) [Concomitant]
  13. LORAZEPAM [Concomitant]

REACTIONS (1)
  - INJECTION SITE HAEMORRHAGE [None]
